FAERS Safety Report 21741093 (Version 1)
Quarter: 2022Q4

REPORT INFORMATION
  Report Type: Spontaneous
  Country: US (occurrence: US)
  Receive Date: 20221216
  Receipt Date: 20221216
  Transmission Date: 20230113
  Serious: No
  Sender: FDA-Public Use
  Company Number: US-AVEO ONCOLOGY-2022-AVEO-US000424

PATIENT

DRUGS (11)
  1. FOTIVDA [Suspect]
     Active Substance: TIVOZANIB HYDROCHLORIDE
     Indication: Renal cell carcinoma
     Dosage: 1.34 MG, DAILY FOR 21 DAYS WITH 7 DAYS OFF (28-DAY CYCLE)
     Route: 048
     Dates: start: 20220904, end: 20221116
  2. ACETAMINOPHEN [Concomitant]
     Active Substance: ACETAMINOPHEN
  3. BACLOFEN [Concomitant]
     Active Substance: BACLOFEN
  4. LEVETIRACETAM [Concomitant]
     Active Substance: LEVETIRACETAM
  5. MEGESTROL [Concomitant]
     Active Substance: MEGESTROL
  6. MIRALAX [Concomitant]
     Active Substance: POLYETHYLENE GLYCOL 3350
  7. MS CONTIN [Concomitant]
     Active Substance: MORPHINE SULFATE
  8. NARCAN [Concomitant]
     Active Substance: NALOXONE HYDROCHLORIDE
  9. OXYCODONE [Concomitant]
     Active Substance: OXYCODONE
  10. PREDNISONE [Concomitant]
     Active Substance: PREDNISONE
  11. XARELTO [Concomitant]
     Active Substance: RIVAROXABAN

REACTIONS (2)
  - Decreased appetite [Unknown]
  - Weight decreased [Unknown]
